FAERS Safety Report 16120643 (Version 25)
Quarter: 2021Q3

REPORT INFORMATION
  Report Type: Spontaneous
  Country: DE (occurrence: DE)
  Receive Date: 20190327
  Receipt Date: 20210911
  Transmission Date: 20211014
  Serious: Yes (Hospitalization, Other)
  Sender: FDA-Public Use
  Company Number: DE-AUROBINDO-AUR-APL-2018-053445

PATIENT
  Age: 79 Year
  Sex: Female
  Weight: 78 kg

DRUGS (27)
  1. LETROZOLE. [Suspect]
     Active Substance: LETROZOLE
     Dosage: 2.5 MILLIGRAM, ONCE A DAY  (28 DAYS)
     Route: 048
     Dates: start: 20180507, end: 20180814
  2. IBRANCE [Suspect]
     Active Substance: PALBOCICLIB
     Indication: BREAST CANCER METASTATIC
     Dosage: 125 MILLIGRAM, (125 MG ADMINISTRATION SCHEME 21 DAYS INTAKE, 7 DAYS PAUSE)
     Route: 048
     Dates: start: 20190801, end: 20200225
  3. IBRANCE [Suspect]
     Active Substance: PALBOCICLIB
     Dosage: 125 MILLIGRAM (125 MG ADMINISTRATION SCHEME 21 DAYS INTAKE, 7 DAYS PAUSE )
     Route: 048
     Dates: start: 20200311
  4. KISQALI [Suspect]
     Active Substance: RIBOCICLIB
     Dosage: 400 MILLIGRAM, ONCE A DAY, (21 DAYS INTAKE, 7 DAYS PAUSE)
     Route: 048
     Dates: start: 20190425, end: 20190604
  5. KISQALI [Suspect]
     Active Substance: RIBOCICLIB
     Dosage: 600 MILLIGRAM, ONCE A DAY, ((21 DAYS INTAKE, 7 DAYS PAUSE)
     Route: 048
     Dates: start: 20180507, end: 20180814
  6. PALBOCICLIB [Suspect]
     Active Substance: PALBOCICLIB
     Dosage: 125 MILLIGRAM,ADMINISTRATION SCHEME 21 DAYS INTAKE, 7 DAYS PAUSE
     Route: 048
     Dates: start: 20200311
  7. LETROZOLE. [Suspect]
     Active Substance: LETROZOLE
     Indication: BREAST CANCER METASTATIC
     Dosage: 2.5 MILLIGRAM, ONCE A DAY  (28 DAYS)
     Route: 048
     Dates: start: 20180817
  8. KISQALI [Suspect]
     Active Substance: RIBOCICLIB
     Dosage: 600 MILLIGRAM, ONCE A DAY, (21/7)
     Route: 048
     Dates: start: 20180831, end: 20180927
  9. KISQALI [Suspect]
     Active Substance: RIBOCICLIB
     Dosage: 600 MILLIGRAM, ONCE A DAY, (21 DAYS INTAKE, 7 DAYS PAUSE)
     Route: 048
     Dates: start: 20181107, end: 20190222
  10. KISQALI [Suspect]
     Active Substance: RIBOCICLIB
     Dosage: 600 MILLIGRAM, ONCE A DAY, ((21 DAYS INTAKE, 7 DAYS PAUSE)
     Route: 048
     Dates: start: 20180827, end: 20190630
  11. DENOSUMAB [Suspect]
     Active Substance: DENOSUMAB
     Indication: PRODUCT USED FOR UNKNOWN INDICATION
     Dosage: UNK
     Route: 065
  12. KISQALI [Suspect]
     Active Substance: RIBOCICLIB
     Dosage: 600 MILLIGRAM, ONCE A DAY
     Route: 048
     Dates: start: 20181031
  13. KISQALI [Suspect]
     Active Substance: RIBOCICLIB
     Dosage: 400 MILLIGRAM, ONCE A DAY,  (21 DAYS INTAKE, 7 DAYS PAUSE)
     Route: 048
     Dates: start: 20190313, end: 20190408
  14. PALBOCICLIB [Suspect]
     Active Substance: PALBOCICLIB
     Indication: BREAST CANCER
     Dosage: 125 MILLIGRAM (125 MG ADMINISTRATION SCHEME 21 DAYS INTAKE, 7 DAYS PAUSE)
     Route: 048
     Dates: start: 20190801, end: 20200225
  15. CITALOPRAM [Concomitant]
     Active Substance: CITALOPRAM HYDROBROMIDE
     Indication: PRODUCT USED FOR UNKNOWN INDICATION
     Dosage: UNK
     Route: 065
  16. KISQALI [Suspect]
     Active Substance: RIBOCICLIB
     Indication: BREAST CANCER METASTATIC
     Dosage: UNK
     Route: 065
  17. KISQALI [Suspect]
     Active Substance: RIBOCICLIB
     Dosage: 600 MILLIGRAM, ONCE A DAY, (21 DAYS INTAKE, 7 DAYS PAUSE)
     Route: 048
     Dates: start: 20181018, end: 20181030
  18. KISQALI [Suspect]
     Active Substance: RIBOCICLIB
     Dosage: 400 MILLIGRAM, ONCE A DAY (21 DAYS INTAKE, 7 DAYS PAUSE)
     Route: 048
     Dates: start: 20190306, end: 20190409
  19. KISQALI [Suspect]
     Active Substance: RIBOCICLIB
     Dosage: 200 MILLIGRAM, ONCE A DAY, (21 DAYS INTAKE, 7 DAYS PAUSE)
     Route: 048
     Dates: start: 20190620, end: 20190731
  20. KISQALI [Suspect]
     Active Substance: RIBOCICLIB
     Dosage: 400 MILLIGRAM, ONCE A DAY, (21 DAYS INTAKE, 7 DAYS PAUSE)
     Route: 048
     Dates: start: 20190701
  21. FOSTER [Concomitant]
     Active Substance: BECLOMETHASONE\FORMOTEROL
     Indication: PRODUCT USED FOR UNKNOWN INDICATION
     Dosage: UNK, ONCE A DAY(UNK, BID (1?0?1)
     Route: 055
  22. SPIRIVA [Concomitant]
     Active Substance: TIOTROPIUM BROMIDE MONOHYDRATE
     Indication: PRODUCT USED FOR UNKNOWN INDICATION
     Dosage: 1 DOSAGE FORM, ONCE A DAY
     Route: 055
  23. LETROZOLE. [Suspect]
     Active Substance: LETROZOLE
     Dosage: 2.5 MILLIGRAM, ONCE A DAY
     Route: 048
     Dates: start: 20180827
  24. KISQALI [Suspect]
     Active Substance: RIBOCICLIB
     Dosage: 600 MILLIGRAM, ONCE A DAY, ((21 DAYS INTAKE, 7 DAYS PAUSE)
     Route: 048
     Dates: start: 20180831, end: 20180916
  25. KISQALI [Suspect]
     Active Substance: RIBOCICLIB
     Dosage: 600 MILLIGRAM, ONCE A DAY, (21 DAYS INTAKE, 7 DAYS PAUSE)
     Route: 048
     Dates: start: 20181018, end: 20190222
  26. KISQALI [Suspect]
     Active Substance: RIBOCICLIB
     Dosage: 200 MILLIGRAM, ONCE A DAY, (21 DAYS INTAKE, 7 DAYS PAUSE)
     Route: 048
     Dates: start: 20190731
  27. SALBUTAMOL [Concomitant]
     Active Substance: ALBUTEROL
     Indication: PRODUCT USED FOR UNKNOWN INDICATION
     Dosage: 1?2 PUFFS, PRN
     Route: 055

REACTIONS (32)
  - Femur fracture [Recovered/Resolved]
  - Nausea [Recovered/Resolved]
  - Vomiting [Not Recovered/Not Resolved]
  - Hypocalcaemia [Recovered/Resolved]
  - Radiculopathy [Not Recovered/Not Resolved]
  - Viral infection [Recovered/Resolved]
  - Diarrhoea [Not Recovered/Not Resolved]
  - Diverticulitis [Recovered/Resolved]
  - Osteonecrosis of jaw [Recovering/Resolving]
  - Pain [Unknown]
  - Femoral neck fracture [Recovered/Resolved]
  - Blood creatinine increased [Not Recovered/Not Resolved]
  - Blood calcium increased [Unknown]
  - Hypokalaemia [Recovered/Resolved]
  - Depressed mood [Unknown]
  - Dyspnoea exertional [Not Recovered/Not Resolved]
  - Liver function test increased [Not Recovered/Not Resolved]
  - Bronchitis [Recovered/Resolved]
  - Depression [Unknown]
  - Fatigue [Not Recovered/Not Resolved]
  - Fall [Unknown]
  - Anaemia [Not Recovered/Not Resolved]
  - Urinary tract infection [Recovered/Resolved]
  - Osteitis [Not Recovered/Not Resolved]
  - Intervertebral disc protrusion [Not Recovered/Not Resolved]
  - Dizziness [Unknown]
  - Electrocardiogram QT prolonged [Recovered/Resolved]
  - White blood cell count decreased [Recovered/Resolved]
  - Lymphopenia [Recovered/Resolved]
  - Oedema peripheral [Not Recovered/Not Resolved]
  - Neutropenia [Recovered/Resolved]
  - Pruritus [Not Recovered/Not Resolved]

NARRATIVE: CASE EVENT DATE: 20180814
